FAERS Safety Report 16035585 (Version 1)
Quarter: 2019Q1

REPORT INFORMATION
  Report Type: Spontaneous
  Country: US (occurrence: US)
  Receive Date: 20190305
  Receipt Date: 20190305
  Transmission Date: 20190418
  Serious: No
  Sender: FDA-Public Use
  Company Number: US-GLAXOSMITHKLINE-US2019034818

PATIENT
  Sex: Female

DRUGS (1)
  1. FLONASE [Suspect]
     Active Substance: FLUTICASONE PROPIONATE
     Indication: SINUS DISORDER
     Dosage: 2 UNK, 1D
     Dates: start: 20190218, end: 20190223

REACTIONS (8)
  - Ocular hyperaemia [Recovering/Resolving]
  - Off label use [Unknown]
  - Eye inflammation [Recovering/Resolving]
  - Ocular discomfort [Recovering/Resolving]
  - Eye pruritus [Recovering/Resolving]
  - Product use in unapproved indication [Unknown]
  - Headache [Recovering/Resolving]
  - Sneezing [Recovering/Resolving]

NARRATIVE: CASE EVENT DATE: 20190220
